FAERS Safety Report 19999345 (Version 1)
Quarter: 2021Q4

REPORT INFORMATION
  Report Type: Spontaneous
  Country: CN (occurrence: CN)
  Receive Date: 20211026
  Receipt Date: 20211026
  Transmission Date: 20220303
  Serious: Yes (Other)
  Sender: FDA-Public Use
  Company Number: CN-ABBVIE-21K-035-4097224-00

PATIENT
  Age: 5 Year
  Sex: Male

DRUGS (3)
  1. VALPROATE SODIUM [Suspect]
     Active Substance: VALPROATE SODIUM
     Indication: Epilepsy
     Dosage: 12 G/300 ML
     Route: 048
  2. VALPROATE SODIUM [Suspect]
     Active Substance: VALPROATE SODIUM
     Route: 048
  3. XIANYU [Concomitant]
     Indication: Product used for unknown indication
     Route: 048

REACTIONS (3)
  - Epilepsy [Unknown]
  - Suspected counterfeit product [Unknown]
  - Drug level below therapeutic [Unknown]
